FAERS Safety Report 15289766 (Version 1)
Quarter: 2018Q3

REPORT INFORMATION
  Report Type: Spontaneous
  Country: US (occurrence: US)
  Receive Date: 20180803
  Receipt Date: 20180803
  Transmission Date: 20181010
  Serious: Yes (Disabling)
  Sender: FDA-Public Use
  Company Number: None

PATIENT
  Age: 49 Year
  Sex: Female
  Weight: 70.31 kg

DRUGS (1)
  1. MIRENA [Suspect]
     Active Substance: LEVONORGESTREL

REACTIONS (10)
  - Anxiety [None]
  - Depression [None]
  - Herpes zoster [None]
  - Neuralgia [None]
  - Fungal infection [None]
  - Feeling abnormal [None]
  - Ovarian cyst [None]
  - Immunosuppression [None]
  - Weight increased [None]
  - Bacterial vaginosis [None]

NARRATIVE: CASE EVENT DATE: 20171210
